FAERS Safety Report 21951167 (Version 1)
Quarter: 2023Q1

REPORT INFORMATION
  Report Type: Spontaneous
  Country: NL (occurrence: NL)
  Receive Date: 20230203
  Receipt Date: 20230203
  Transmission Date: 20230418
  Serious: Yes (Other)
  Sender: FDA-Public Use
  Company Number: None

PATIENT
  Sex: Female
  Weight: 60 kg

DRUGS (2)
  1. LIDOCAINE HYDROCHLORIDE [Suspect]
     Active Substance: LIDOCAINE HYDROCHLORIDE
     Indication: Periarthritis
     Dosage: 4 CC (80 MG)
     Dates: start: 20221219
  2. TRIAMCINOLONE ACETONIDE [Suspect]
     Active Substance: TRIAMCINOLONE ACETONIDE
     Indication: Periarthritis
     Dosage: 1 INJECTIE (40 MG) INTRA-ARTICULAIR GLENOHUMERAAL?ENGLISH TRANSLATION: ONE INJECTION (4 MG) INTRA-AR
     Route: 014
     Dates: start: 20221219

REACTIONS (1)
  - Muscular weakness [Recovering/Resolving]
